FAERS Safety Report 8412901-8 (Version None)
Quarter: 2012Q2

REPORT INFORMATION
  Report Type: 
  Country: None (occurrence: None)
  Receive Date: 20120605
  Receipt Date: 20120524
  Transmission Date: 20120825
  Serious: Yes (Other)
  Sender: FDA-Public Use
  Company Number: US-AMGEN-USASP2012031566

PATIENT
  Age: 57 Year
  Sex: Female
  Weight: 95 kg

DRUGS (1)
  1. ENBREL [Suspect]
     Indication: RHEUMATOID ARTHRITIS
     Dosage: 50 MG, QWK
     Route: 058
     Dates: start: 20120515, end: 20120515

REACTIONS (10)
  - HEADACHE [None]
  - THROAT TIGHTNESS [None]
  - FEELING HOT [None]
  - OROPHARYNGEAL PAIN [None]
  - PHARYNGEAL OEDEMA [None]
  - DRUG HYPERSENSITIVITY [None]
  - NERVOUSNESS [None]
  - FLUSHING [None]
  - FEELING ABNORMAL [None]
  - LIMB DISCOMFORT [None]
